FAERS Safety Report 5447854-8 (Version None)
Quarter: 2007Q3

REPORT INFORMATION
  Report Type: 
  Country: None (occurrence: None)
  Receive Date: 20070910
  Receipt Date: 20070830
  Transmission Date: 20080115
  Serious: Yes (Hospitalization)
  Sender: FDA-Public Use
  Company Number: GB-PFIZER INC-2006006197

PATIENT
  Sex: Female
  Weight: 47.5 kg

DRUGS (6)
  1. VORICONAZOLE [Suspect]
     Indication: PROPHYLAXIS
     Route: 048
     Dates: start: 20051025, end: 20060113
  2. CYCLOSPORINE [Concomitant]
     Route: 048
  3. ACYCLOVIR [Concomitant]
     Route: 048
  4. CIPROFLOXACIN [Concomitant]
     Route: 048
  5. OMEPRAZOLE [Concomitant]
     Route: 048
  6. PARACETAMOL [Concomitant]
     Route: 048

REACTIONS (4)
  - EYE SWELLING [None]
  - MUCORMYCOSIS [None]
  - MYALGIA [None]
  - PRODUCTIVE COUGH [None]
